FAERS Safety Report 15942312 (Version 1)
Quarter: 2019Q1

REPORT INFORMATION
  Report Type: Spontaneous
  Country: DE (occurrence: DE)
  Receive Date: 20190209
  Receipt Date: 20190209
  Transmission Date: 20190417
  Serious: Yes (Hospitalization)
  Sender: FDA-Public Use
  Company Number: DE-DRREDDYS-GER/GER/19/0107472

PATIENT
  Age: 15 Year
  Sex: Female
  Weight: 47 kg

DRUGS (3)
  1. QUETIAPINE. [Suspect]
     Active Substance: QUETIAPINE
     Indication: SUICIDAL IDEATION
     Route: 048
     Dates: start: 20180906, end: 20180906
  2. VOMEXA [Suspect]
     Active Substance: DIMENHYDRINATE
     Indication: SUICIDAL IDEATION
     Route: 048
     Dates: start: 20180906, end: 20180906
  3. METHYLPHENIDAT [Concomitant]
     Active Substance: METHYLPHENIDATE
     Indication: PRODUCT USED FOR UNKNOWN INDICATION
     Dosage: DAILY DOSE: 30 MG MILLGRAM(S) EVERY DAYS

REACTIONS (1)
  - Intentional overdose [Recovered/Resolved]

NARRATIVE: CASE EVENT DATE: 20180906
